FAERS Safety Report 9822425 (Version 2)
Quarter: 2014Q1

REPORT INFORMATION
  Report Type: Spontaneous
  Country: CA (occurrence: CA)
  Receive Date: 20140116
  Receipt Date: 20140121
  Transmission Date: 20141002
  Serious: Yes (Other)
  Sender: FDA-Public Use
  Company Number: CA-ASTRAZENECA-2014SE02298

PATIENT
  Sex: Male

DRUGS (3)
  1. VIMOVO [Suspect]
     Dosage: 500 MG/20 MG
     Route: 048
  2. CELEBREX [Concomitant]
  3. NAPROXEN [Concomitant]

REACTIONS (2)
  - Haemoglobin decreased [Recovered/Resolved]
  - Gastrointestinal haemorrhage [Recovered/Resolved]
